FAERS Safety Report 5647139-0 (Version None)
Quarter: 2008Q1

REPORT INFORMATION
  Report Type: 
  Country: None (occurrence: None)
  Receive Date: 20080228
  Receipt Date: 20080220
  Transmission Date: 20080703
  Serious: Yes (Hospitalization)
  Sender: FDA-Public Use
  Company Number: 2008-01468

PATIENT
  Age: 28 Year
  Sex: Male

DRUGS (5)
  1. NORINYL 1+35 28-DAY [Suspect]
     Indication: TRANSGENDER HORMONAL THERAPY
     Dosage: 100 UG, DAILY, ORAL; 50 UG, DAILY, ORAL
     Route: 048
     Dates: start: 20070101, end: 20070101
  2. NORINYL 1+35 28-DAY [Suspect]
     Indication: TRANSGENDER HORMONAL THERAPY
     Dosage: 100 UG, DAILY, ORAL; 50 UG, DAILY, ORAL
     Route: 048
     Dates: start: 20070101
  3. ESTRADIOL [Suspect]
     Indication: TRANSGENDER OPERATION
     Dosage: 100 MG, 2/WEEK, INTRAMUSCULAR
     Route: 030
  4. CYPROTERONE (CYPROTERONE) [Concomitant]
  5. SPIRONOLACTONE [Concomitant]

REACTIONS (1)
  - MENINGIOMA [None]
